FAERS Safety Report 15762432 (Version 1)
Quarter: 2018Q4

REPORT INFORMATION
  Report Type: Spontaneous
  Country: FR (occurrence: FR)
  Receive Date: 20181226
  Receipt Date: 20181226
  Transmission Date: 20190205
  Serious: Yes (Life-Threatening, Other)
  Sender: FDA-Public Use
  Company Number: FR-CELGENEUS-FRA-20181206269

PATIENT
  Age: 84 Year
  Sex: Male

DRUGS (9)
  1. HYDREA [Concomitant]
     Active Substance: HYDROXYUREA
     Indication: PRODUCT USED FOR UNKNOWN INDICATION
     Route: 048
     Dates: start: 20151210
  2. HYDREA [Concomitant]
     Active Substance: HYDROXYUREA
     Route: 048
     Dates: start: 20151212
  3. HYDREA [Concomitant]
     Active Substance: HYDROXYUREA
     Route: 048
     Dates: start: 20151228
  4. AZACITIDINE. [Suspect]
     Active Substance: AZACITIDINE
     Route: 058
     Dates: start: 20160208, end: 20160214
  5. NEBIVOLOL. [Concomitant]
     Active Substance: NEBIVOLOL
     Indication: PRODUCT USED FOR UNKNOWN INDICATION
     Route: 065
  6. AZACITIDINE. [Suspect]
     Active Substance: AZACITIDINE
     Indication: MYELOPROLIFERATIVE NEOPLASM
     Route: 058
     Dates: start: 20151210, end: 20151216
  7. HYDREA [Concomitant]
     Active Substance: HYDROXYUREA
     Route: 048
     Dates: start: 20151222
  8. PRADAXA [Concomitant]
     Active Substance: DABIGATRAN ETEXILATE MESYLATE
     Indication: ATRIAL FIBRILLATION
     Dosage: 150 MILLIGRAM
     Route: 048
     Dates: start: 20160215
  9. AZACITIDINE. [Suspect]
     Active Substance: AZACITIDINE
     Route: 058
     Dates: start: 20160111, end: 20160117

REACTIONS (8)
  - Gingival bleeding [Recovered/Resolved]
  - Epistaxis [Recovered/Resolved]
  - Overdose [Unknown]
  - Tumour lysis syndrome [Not Recovered/Not Resolved]
  - Acute kidney injury [Unknown]
  - Anaemia [Recovering/Resolving]
  - Haemorrhage urinary tract [Recovered/Resolved]
  - Blood creatinine increased [Not Recovered/Not Resolved]

NARRATIVE: CASE EVENT DATE: 20160208
